FAERS Safety Report 22163952 (Version 1)
Quarter: 2023Q2

REPORT INFORMATION
  Report Type: Report from Study
  Country: US (occurrence: US)
  Receive Date: 20230402
  Receipt Date: 20230402
  Transmission Date: 20230721
  Serious: No
  Sender: FDA-Public Use
  Company Number: US-drreddys-SPO/USA/23/0161293

PATIENT
  Age: 7 Year
  Sex: Female

DRUGS (1)
  1. SAPROPTERIN DIHYDROCHLORIDE [Suspect]
     Active Substance: SAPROPTERIN DIHYDROCHLORIDE
     Indication: Phenylketonuria
     Dosage: SAPROPTERIN DIHYDROCHLORIDE POWDER ORAL SOLUTION 600 MG ORALLY INTAKE DAILY.
     Route: 048
     Dates: start: 20221018, end: 20230206

REACTIONS (2)
  - Pharyngitis streptococcal [Recovered/Resolved]
  - Product administration interrupted [Unknown]

NARRATIVE: CASE EVENT DATE: 20230206
